FAERS Safety Report 24651236 (Version 2)
Quarter: 2025Q1

REPORT INFORMATION
  Report Type: Spontaneous
  Country: US (occurrence: US)
  Receive Date: 20241122
  Receipt Date: 20250205
  Transmission Date: 20250409
  Serious: No
  Sender: KALEO, INC.
  Company Number: US-Kaleo, Inc.-2024KL000053

PATIENT
  Age: 25 Year
  Sex: Male

DRUGS (1)
  1. AUVI-Q [Suspect]
     Active Substance: EPINEPHRINE

REACTIONS (1)
  - No device malfunction [Recovered/Resolved]
